FAERS Safety Report 7584141-6 (Version None)
Quarter: 2011Q2

REPORT INFORMATION
  Report Type: 
  Country: None (occurrence: None)
  Receive Date: 20110630
  Receipt Date: 20110627
  Transmission Date: 20111010
  Serious: Yes (Other)
  Sender: FDA-Public Use
  Company Number: JP-PFIZER INC-2011128148

PATIENT
  Age: 86 Year
  Sex: Female

DRUGS (1)
  1. ZYVOX [Suspect]
     Indication: SPONDYLITIS
     Dosage: 600 MG, 2X/DAY
     Route: 048
     Dates: start: 20110524, end: 20110602

REACTIONS (6)
  - PLATELET COUNT DECREASED [None]
  - RESPIRATORY FAILURE [None]
  - NAUSEA [None]
  - DECREASED APPETITE [None]
  - CARDIAC FAILURE [None]
  - VOMITING [None]
